FAERS Safety Report 5599916-2 (Version None)
Quarter: 2008Q1

REPORT INFORMATION
  Report Type: 
  Country: None (occurrence: None)
  Receive Date: 20080123
  Receipt Date: 20080116
  Transmission Date: 20080703
  Serious: Yes (Hospitalization)
  Sender: FDA-Public Use
  Company Number: US-JNJFOC-20080104697

PATIENT
  Age: 89 Year
  Sex: Female

DRUGS (2)
  1. LEVAQUIN [Suspect]
     Indication: COUGH
     Route: 048
  2. LEVAQUIN [Suspect]
     Indication: NASOPHARYNGITIS
     Route: 048

REACTIONS (3)
  - DIZZINESS [None]
  - DYSSTASIA [None]
  - PALPITATIONS [None]
